FAERS Safety Report 20922981 (Version 2)
Quarter: 2022Q3

REPORT INFORMATION
  Report Type: Spontaneous
  Country: US (occurrence: US)
  Receive Date: 20220607
  Receipt Date: 20220921
  Transmission Date: 20221027
  Serious: No
  Sender: FDA-Public Use
  Company Number: US-PHARMAESSENTIA CORPORATION-US-2022-PEC-000537

PATIENT

DRUGS (3)
  1. BESREMI [Suspect]
     Active Substance: ROPEGINTERFERON ALFA-2B-NJFT
     Indication: Polycythaemia vera
     Dosage: 50 MCG EVERY 14 DAYS
     Route: 058
     Dates: start: 20220309
  2. BESREMI [Suspect]
     Active Substance: ROPEGINTERFERON ALFA-2B-NJFT
     Dosage: UNK
     Route: 058
  3. FAMOTIDINE [Concomitant]
     Active Substance: FAMOTIDINE
     Indication: Gastrooesophageal reflux disease
     Dosage: 40 MILLIGRAM
     Route: 065
     Dates: start: 2021

REACTIONS (10)
  - Anxiety [Recovering/Resolving]
  - Dehydration [Recovered/Resolved]
  - Gastrooesophageal reflux disease [Recovering/Resolving]
  - Haematocrit increased [Unknown]
  - Hypertension [Unknown]
  - Headache [Unknown]
  - Asthenia [Recovered/Resolved]
  - Injection site reaction [Unknown]
  - Fatigue [Recovered/Resolved]
  - Insomnia [Unknown]

NARRATIVE: CASE EVENT DATE: 20220311
